FAERS Safety Report 10017136 (Version 2)
Quarter: 2014Q2

REPORT INFORMATION
  Report Type: Spontaneous
  Country: US (occurrence: US)
  Receive Date: 20140318
  Receipt Date: 20140411
  Transmission Date: 20141212
  Serious: Yes (Other)
  Sender: FDA-Public Use
  Company Number: US-BRISTOL-MYERS SQUIBB COMPANY-20418802

PATIENT
  Age: 55 Year
  Sex: Female

DRUGS (2)
  1. SPRYCEL [Suspect]
     Indication: ACUTE LYMPHOCYTIC LEUKAEMIA
     Dosage: TABLETS
     Route: 048
     Dates: start: 20140216
  2. NEUPOGEN [Suspect]

REACTIONS (2)
  - Bone marrow transplant [Unknown]
  - White blood cell count decreased [Unknown]
